FAERS Safety Report 21808554 (Version 1)
Quarter: 2023Q1

REPORT INFORMATION
  Report Type: Spontaneous
  Country: BE (occurrence: BE)
  Receive Date: 20230103
  Receipt Date: 20230103
  Transmission Date: 20230418
  Serious: Yes (Life-Threatening, Other)
  Sender: FDA-Public Use
  Company Number: BE-FAMHP-DHH-N2021-108962

PATIENT
  Age: 28 Year
  Sex: Male
  Weight: 95 kg

DRUGS (8)
  1. MONTELUKAST SODIUM [Suspect]
     Active Substance: MONTELUKAST SODIUM
     Indication: Asthma
     Dosage: 1 DOSAGE FORM, ONCE A DAY (MORNING OR EVENING)
     Route: 048
     Dates: start: 20210101, end: 20210129
  2. MONTELUKAST SODIUM [Suspect]
     Active Substance: MONTELUKAST SODIUM
     Indication: Hypersensitivity
  3. BUDESONIDE [Concomitant]
     Active Substance: BUDESONIDE
     Indication: Product used for unknown indication
     Dosage: UNK(TAKEN DURING THE SAME PERIOD AS THE MONTELUKAST AB 10MG)
  4. VENTOLIN [Concomitant]
     Active Substance: ALBUTEROL SULFATE
     Indication: Product used for unknown indication
     Dosage: UNK(TAKEN DURING THE SAME PERIOD AS THE MONTELUKAST AB 10MG)
  5. PANTOPRAZOLE [Concomitant]
     Active Substance: PANTOPRAZOLE
     Indication: Product used for unknown indication
     Dosage: UNK(TAKEN DURING THE SAME PERIOD AS THE MONTELUKAST AB 10MG)
     Route: 048
  6. VENTOLIN [Concomitant]
     Active Substance: ALBUTEROL SULFATE
     Indication: Product used for unknown indication
     Dosage: UNK(TAKEN DURING THE SAME PERIOD AS THE MONTELUKAST AB 10MG)
  7. SPIRIVA [Concomitant]
     Active Substance: TIOTROPIUM BROMIDE MONOHYDRATE
     Indication: Product used for unknown indication
     Dosage: UNK(TAKEN DURING THE SAME PERIOD AS THE MONTELUKAST AB 10MG)
  8. SYMBICORT [Concomitant]
     Active Substance: BUDESONIDE\FORMOTEROL FUMARATE DIHYDRATE
     Indication: Product used for unknown indication
     Dosage: UNK(TAKEN DURING THE SAME PERIOD AS THE MONTELUKAST AB 10MG)

REACTIONS (24)
  - Pyrexia [Recovering/Resolving]
  - Pneumonia [Recovering/Resolving]
  - Anger [Recovering/Resolving]
  - Epistaxis [Recovering/Resolving]
  - Nausea [Recovering/Resolving]
  - Ecchymosis [Recovering/Resolving]
  - Anxiety [Recovering/Resolving]
  - Hypoaesthesia [Recovering/Resolving]
  - Palpitations [Recovering/Resolving]
  - Headache [Recovering/Resolving]
  - Agitation [Recovering/Resolving]
  - Confusional state [Recovering/Resolving]
  - Nightmare [Recovering/Resolving]
  - Dyspepsia [Recovering/Resolving]
  - Depression [Recovering/Resolving]
  - Disturbance in attention [Recovering/Resolving]
  - Irritability [Recovering/Resolving]
  - Insomnia [Recovering/Resolving]
  - Memory impairment [Recovering/Resolving]
  - Eosinophilia [Recovering/Resolving]
  - Mood altered [Recovering/Resolving]
  - Tremor [Recovering/Resolving]
  - Vertigo [Recovering/Resolving]
  - Arthralgia [Recovering/Resolving]

NARRATIVE: CASE EVENT DATE: 20210116
